FAERS Safety Report 20255487 (Version 1)
Quarter: 2021Q4

REPORT INFORMATION
  Report Type: Spontaneous
  Country: RU (occurrence: RU)
  Receive Date: 20211230
  Receipt Date: 20211230
  Transmission Date: 20220303
  Serious: Yes (Life-Threatening, Hospitalization)
  Sender: FDA-Public Use
  Company Number: RU-CELGENE-RUS-20211207701

PATIENT
  Age: 58 Year
  Sex: Male

DRUGS (9)
  1. AZACITIDINE [Suspect]
     Active Substance: AZACITIDINE
     Indication: Myelodysplastic syndrome
     Route: 058
     Dates: start: 20210929, end: 20211114
  2. FLUCONAZOLE [Concomitant]
     Active Substance: FLUCONAZOLE
     Indication: Antifungal prophylaxis
     Dosage: 300 MICROGRAM
     Route: 048
     Dates: start: 20210929
  3. BISEPTOL [Concomitant]
     Active Substance: SULFAMETHOXAZOLE\TRIMETHOPRIM
     Indication: Pneumocystis jirovecii infection
     Dosage: 480 MILLIGRAM
     Route: 048
     Dates: start: 20211001
  4. MEROPENEM [Concomitant]
     Active Substance: MEROPENEM
     Indication: Febrile neutropenia
     Dosage: 3 GRAM
     Route: 041
     Dates: start: 20211021
  5. LINEZOLID [Concomitant]
     Active Substance: LINEZOLID
     Indication: Febrile neutropenia
     Dosage: 1200 MILLIGRAM
     Route: 041
     Dates: start: 20211021
  6. AMIKACIN [Concomitant]
     Active Substance: AMIKACIN
     Indication: Febrile neutropenia
     Dosage: 1 GRAM
     Route: 041
     Dates: start: 20211020
  7. BISOPROLOL [Concomitant]
     Active Substance: BISOPROLOL
     Indication: Atrial fibrillation
     Dosage: 5 MILLIGRAM
     Route: 048
     Dates: start: 2004
  8. BISOPROLOL [Concomitant]
     Active Substance: BISOPROLOL
     Indication: Cardiac disorder
  9. BISOPROLOL [Concomitant]
     Active Substance: BISOPROLOL
     Indication: Angina pectoris

REACTIONS (1)
  - COVID-19 [Not Recovered/Not Resolved]

NARRATIVE: CASE EVENT DATE: 20211221
